FAERS Safety Report 16660894 (Version 1)
Quarter: 2019Q3

REPORT INFORMATION
  Report Type: Spontaneous
  Country: IL (occurrence: IL)
  Receive Date: 20190802
  Receipt Date: 20190802
  Transmission Date: 20191004
  Serious: Yes (Other)
  Sender: FDA-Public Use
  Company Number: IL-NOVOPROD-676644

PATIENT
  Sex: Male

DRUGS (1)
  1. TREGLUDEC FLEXTOUCH [Suspect]
     Active Substance: INSULIN DEGLUDEC
     Indication: PRODUCT USED FOR UNKNOWN INDICATION
     Dosage: FROM 1.5 AGO (UNSPECIFIED)
     Route: 065

REACTIONS (4)
  - Myocardial infarction [Unknown]
  - Injection site nodule [Unknown]
  - Injection site pain [Unknown]
  - Injection site discolouration [Unknown]
